FAERS Safety Report 23724170 (Version 9)
Quarter: 2025Q3

REPORT INFORMATION
  Report Type: Spontaneous
  Country: US (occurrence: US)
  Receive Date: 20240409
  Receipt Date: 20250703
  Transmission Date: 20251021
  Serious: Yes (Other)
  Sender: BRISTOL-MYERS SQUIBB COMPANY
  Company Number: US-BRISTOL-MYERS SQUIBB COMPANY-2024-052014

PATIENT
  Age: 68 Year
  Sex: Female

DRUGS (2)
  1. REVLIMID [Suspect]
     Active Substance: LENALIDOMIDE
     Indication: Acute lymphocytic leukaemia
     Dosage: QD FOR 21 DAYS ON AND 7 DAYS OFF
     Route: 048
  2. REVLIMID [Suspect]
     Active Substance: LENALIDOMIDE
     Indication: Plasma cell myeloma
     Route: 048

REACTIONS (16)
  - Streptococcal bacteraemia [Recovering/Resolving]
  - Neuropathy peripheral [Not Recovered/Not Resolved]
  - Viral infection [Unknown]
  - Fatigue [Unknown]
  - Renal impairment [Unknown]
  - Product dose omission issue [Unknown]
  - Diarrhoea [Unknown]
  - Nausea [Unknown]
  - Hypotension [Unknown]
  - Staphylococcal bacteraemia [Unknown]
  - Nasopharyngitis [Unknown]
  - Diverticulitis [Unknown]
  - Rhinovirus infection [Recovering/Resolving]
  - Sialoadenitis [Unknown]
  - Vulvovaginal mycotic infection [Unknown]
  - Candida infection [Unknown]

NARRATIVE: CASE EVENT DATE: 20250501
